FAERS Safety Report 9379753 (Version 2)
Quarter: 2013Q3

REPORT INFORMATION
  Report Type: Spontaneous
  Country: JP (occurrence: JP)
  Receive Date: 20130702
  Receipt Date: 20130710
  Transmission Date: 20140515
  Serious: Yes (Other)
  Sender: FDA-Public Use
  Company Number: PHHY2013JP066968

PATIENT
  Age: 51 Year
  Sex: Male

DRUGS (13)
  1. ESANBUTOL [Suspect]
     Indication: PULMONARY TUBERCULOSIS
     Dosage: UNK UKN, UNK
     Route: 048
     Dates: start: 19990901
  2. ESANBUTOL [Suspect]
     Dosage: 750 MG, UNK
     Route: 048
     Dates: start: 20060809
  3. ISONIAZID [Suspect]
     Indication: PULMONARY TUBERCULOSIS
     Dosage: UNK UKN, UNK
     Dates: start: 19990901
  4. ISONIAZID [Suspect]
     Dosage: UNK UKN, UNK
     Dates: start: 200004
  5. ISONIAZID [Suspect]
     Dosage: UNK UKN, UNK
     Dates: start: 200606
  6. ISONIAZID [Suspect]
     Dosage: 200 MG, UNK
     Dates: start: 20060809
  7. LEVOFLOXACIN [Suspect]
     Indication: PULMONARY TUBERCULOSIS
     Dosage: 300 MG, UNK
     Route: 048
     Dates: start: 20060809
  8. STREPTOMYCIN SULFATE [Suspect]
     Indication: PULMONARY TUBERCULOSIS
     Dosage: UNK UKN, UNK
     Dates: start: 200606
  9. KANAMYCIN SULFATE [Concomitant]
     Indication: PULMONARY TUBERCULOSIS
     Dosage: 0.5 G, BID
     Dates: start: 20060809
  10. RIFAMPICIN [Concomitant]
     Indication: PULMONARY TUBERCULOSIS
     Dosage: UNK UKN, UNK
     Route: 048
     Dates: start: 19990901
  11. RIFAMPICIN [Concomitant]
     Dosage: UNK UKN, UNK
     Route: 048
     Dates: start: 200004
  12. RIFAMPICIN [Concomitant]
     Dosage: UNK UKN, UNK
     Route: 048
     Dates: start: 200606
  13. INSULIN [Concomitant]
     Indication: TYPE 2 DIABETES MELLITUS

REACTIONS (6)
  - Tuberculosis [Recovering/Resolving]
  - Pulmonary tuberculosis [Recovering/Resolving]
  - Cough [Recovering/Resolving]
  - Sputum abnormal [Recovering/Resolving]
  - Pyrexia [Recovering/Resolving]
  - Drug resistance [Unknown]
